FAERS Safety Report 21741661 (Version 2)
Quarter: 2022Q4

REPORT INFORMATION
  Report Type: Spontaneous
  Country: US (occurrence: US)
  Receive Date: 20221216
  Receipt Date: 20221228
  Transmission Date: 20230113
  Serious: Yes (Other)
  Sender: FDA-Public Use
  Company Number: US-PFIZER INC-202201368832

PATIENT
  Age: 67 Year
  Sex: Male
  Weight: 81.65 kg

DRUGS (8)
  1. LINEZOLID [Suspect]
     Active Substance: LINEZOLID
     Indication: Localised infection
     Dosage: 600 MG, 1 IN THE MORNING AND 1 AT NIGHT
     Dates: start: 2022, end: 20221208
  2. GABAPENTIN [Concomitant]
     Active Substance: GABAPENTIN
     Dosage: 600 MG, 3X/DAY
  3. AMLODIPINE [Concomitant]
     Active Substance: AMLODIPINE BESYLATE
     Dosage: UNK
  4. GLIMEPIRIDE [Concomitant]
     Active Substance: GLIMEPIRIDE
     Dosage: UNK
  5. ATORVASTATIN [Concomitant]
     Active Substance: ATORVASTATIN
     Dosage: UNK
  6. PIOGLITAZONE [Concomitant]
     Active Substance: PIOGLITAZONE
     Dosage: UNK
  7. TYLENOL EXTRA STRENGTH [Concomitant]
     Active Substance: ACETAMINOPHEN
     Dosage: 1300MG AT NIGHT BEFORE GO TO BED
  8. BAYER ASPIRIN [Concomitant]
     Active Substance: ASPIRIN
     Dosage: 81 MG, 1X/DAY

REACTIONS (8)
  - Blood glucose abnormal [Recovered/Resolved]
  - Fatigue [Recovered/Resolved]
  - Diarrhoea [Recovered/Resolved]
  - Insomnia [Recovered/Resolved]
  - Gastrointestinal sounds abnormal [Recovered/Resolved]
  - Ageusia [Recovered/Resolved]
  - Decreased appetite [Recovered/Resolved]
  - Visual impairment [Unknown]

NARRATIVE: CASE EVENT DATE: 20220101
